FAERS Safety Report 7301783-3 (Version None)
Quarter: 2011Q1

REPORT INFORMATION
  Report Type: 
  Country: None (occurrence: None)
  Receive Date: 20110218
  Receipt Date: 20110211
  Transmission Date: 20110831
  Serious: Yes (Other)
  Sender: FDA-Public Use
  Company Number: A0914171A

PATIENT
  Age: 9 Year
  Sex: Female

DRUGS (5)
  1. ROCEPHIN [Suspect]
     Indication: PNEUMONIA
     Route: 042
  2. XOPENEX [Suspect]
     Indication: PNEUMONIA
     Route: 055
     Dates: start: 20101223, end: 20101226
  3. SOLU-MEDROL [Suspect]
     Indication: ASTHMA
     Dosage: 40MG UNKNOWN
     Route: 042
     Dates: start: 20101223
  4. ZANTAC [Suspect]
     Indication: ABDOMINAL PAIN
     Dosage: 40MG THREE TIMES PER DAY
     Route: 042
     Dates: start: 20101224
  5. ALBUTEROL [Concomitant]

REACTIONS (10)
  - HALLUCINATION, VISUAL [None]
  - VISUAL IMPAIRMENT [None]
  - DRUG INEFFECTIVE [None]
  - NAUSEA [None]
  - OXYGEN SATURATION DECREASED [None]
  - VISION BLURRED [None]
  - PANIC REACTION [None]
  - FEAR [None]
  - WHEEZING [None]
  - ABDOMINAL PAIN [None]
